FAERS Safety Report 6059726-9 (Version None)
Quarter: 2009Q1

REPORT INFORMATION
  Report Type: 
  Country: None (occurrence: None)
  Receive Date: 20090130
  Receipt Date: 20090119
  Transmission Date: 20090719
  Serious: Yes (Other)
  Sender: FDA-Public Use
  Company Number: CA-GENENTECH-266836

PATIENT
  Sex: Female

DRUGS (6)
  1. HERCEPTIN [Suspect]
     Indication: BREAST CANCER
     Dosage: 8 MG/KG, SINGLE
     Route: 042
  2. HERCEPTIN [Suspect]
     Dosage: 6 MG/KG, Q3W
  3. FLUOROURACIL [Suspect]
     Indication: BREAST CANCER
  4. EPIRUBICIN [Suspect]
     Indication: BREAST CANCER
  5. CYCLOPHOSPHAMIDE [Suspect]
     Indication: BREAST CANCER
  6. ADRIAMYCIN PFS [Suspect]
     Indication: BREAST CANCER

REACTIONS (2)
  - CARDIOMYOPATHY [None]
  - MYOCARDITIS [None]
